FAERS Safety Report 6642317-6 (Version None)
Quarter: 2010Q1

REPORT INFORMATION
  Report Type: 
  Country: None (occurrence: None)
  Receive Date: 20100319
  Receipt Date: 20100313
  Transmission Date: 20100710
  Serious: Yes (Other)
  Sender: FDA-Public Use
  Company Number: CA-ROCHE-673849

PATIENT
  Sex: Female
  Weight: 88.9 kg

DRUGS (6)
  1. TAMIFLU [Suspect]
     Indication: INFLUENZA
     Route: 048
     Dates: start: 20091101, end: 20091114
  2. ALTACE HCT [Concomitant]
     Indication: HYPERTENSION
     Dosage: 10/12.5 MG
     Route: 048
  3. ATENOLOL [Concomitant]
     Indication: HYPERTENSION
     Route: 048
  4. CADUET [Concomitant]
     Dosage: 10/20 MG
     Route: 048
  5. CALCIUM [Concomitant]
     Route: 048
  6. DIVALPROEX SODIUM [Concomitant]
     Dosage: DOSE: 01 IN AM AND 02 IN PM
     Route: 048

REACTIONS (1)
  - RASH [None]
